FAERS Safety Report 5266723-X (Version None)
Quarter: 2007Q1

REPORT INFORMATION
  Report Type: 
  Country: None (occurrence: None)
  Receive Date: 20070312
  Receipt Date: 20070222
  Transmission Date: 20070707
  Serious: Yes (Hospitalization)
  Sender: FDA-Public Use
  Company Number: DSA_29478_2007

PATIENT
  Age: 33 Year
  Sex: Male

DRUGS (4)
  1. ENALAPRIL MALEATE [Suspect]
     Indication: HYPERTENSION
     Dosage: DF UNK PO
     Route: 048
     Dates: end: 20061218
  2. PREDNISONE [Suspect]
     Dosage: DF UNK PO
     Route: 048
     Dates: start: 19950101, end: 20061218
  3. NEORAL [Suspect]
     Indication: RENAL TRANSPLANT
     Dosage: DF UNK PO
     Route: 048
     Dates: start: 19950101, end: 20061218
  4. SANDIMMUNE [Suspect]
     Dosage: DF UNK UNK

REACTIONS (1)
  - PANCREATITIS ACUTE [None]
